FAERS Safety Report 8997844 (Version 1)
Quarter: 2013Q1

REPORT INFORMATION
  Report Type: Report from Study
  Country: DE (occurrence: DE)
  Receive Date: 20130104
  Receipt Date: 20130104
  Transmission Date: 20140127
  Serious: Yes (Hospitalization)
  Sender: FDA-Public Use
  Company Number: DE-GLAXOSMITHKLINE-B0856478A

PATIENT
  Age: 56 Year
  Sex: Female
  Weight: 81 kg

DRUGS (5)
  1. TOPOTECAN [Suspect]
     Indication: OVARIAN CANCER
     Dosage: 4MG PER DAY
     Route: 042
     Dates: start: 20101214
  2. PACLITAXEL [Suspect]
     Indication: OVARIAN CANCER
     Route: 065
  3. BEVACIZUMAB [Suspect]
     Indication: OVARIAN CANCER
     Route: 042
     Dates: start: 20101214, end: 20110119
  4. DOXORUBICIN [Suspect]
     Indication: OVARIAN CANCER
     Route: 065
  5. PANTOPRAZOLE [Concomitant]
     Dosage: 40MG PER DAY
     Dates: start: 20091209

REACTIONS (2)
  - Ileal perforation [Not Recovered/Not Resolved]
  - Peritonitis [Not Recovered/Not Resolved]
